FAERS Safety Report 5989985-X (Version None)
Quarter: 2008Q4

REPORT INFORMATION
  Report Type: 
  Country: None (occurrence: None)
  Receive Date: 20081209
  Receipt Date: 20081209
  Transmission Date: 20090506
  Serious: Yes (Other)
  Sender: FDA-Public Use
  Company Number: None

PATIENT
  Age: 5 Year
  Sex: Female
  Weight: 17.6903 kg

DRUGS (1)
  1. VERMOX [Suspect]
     Indication: HELMINTHIC INFECTION
     Dosage: ONE DOSE, 500 MG ONCE PO
     Route: 048
     Dates: start: 20081206, end: 20081206

REACTIONS (4)
  - ERYTHEMA [None]
  - PRURITUS [None]
  - SWELLING [None]
  - URTICARIA [None]
